FAERS Safety Report 13998822 (Version 2)
Quarter: 2018Q2

REPORT INFORMATION
  Report Type: Spontaneous
  Country: US (occurrence: US)
  Receive Date: 20170921
  Receipt Date: 20180604
  Transmission Date: 20180711
  Serious: No
  Sender: FDA-Public Use
  Company Number: US-NEUROCRINE BIOSCIENCES INC.-2017NBI00598

PATIENT
  Age: 20 Year
  Sex: Male

DRUGS (6)
  1. INGREZZA [Suspect]
     Active Substance: VALBENAZINE
  2. HALDOL [Concomitant]
     Active Substance: HALOPERIDOL
     Dosage: AT BED TIME
  3. CLONAZEPAM. [Concomitant]
     Active Substance: CLONAZEPAM
     Indication: ANXIETY
     Dosage: MORNING AND AT BED TIME
  4. INGREZZA [Suspect]
     Active Substance: VALBENAZINE
     Indication: TARDIVE DYSKINESIA
     Dosage: EVERY MORNING
     Dates: end: 20170928
  5. BENZTROPINE. [Suspect]
     Active Substance: BENZTROPINE
     Indication: PRODUCT USED FOR UNKNOWN INDICATION
  6. LORAZEPAM. [Concomitant]
     Active Substance: LORAZEPAM
     Dosage: AT BED TIME

REACTIONS (8)
  - Dysarthria [Not Recovered/Not Resolved]
  - Insomnia [Unknown]
  - Hallucination, auditory [Unknown]
  - Aggression [Unknown]
  - Blood bilirubin increased [Unknown]
  - Sedation [Not Recovered/Not Resolved]
  - Agitation [Unknown]
  - Fatigue [Unknown]

NARRATIVE: CASE EVENT DATE: 20170802
